FAERS Safety Report 13256597 (Version 1)
Quarter: 2017Q1

REPORT INFORMATION
  Report Type: Spontaneous
  Country: US (occurrence: US)
  Receive Date: 20170220
  Receipt Date: 20170220
  Transmission Date: 20170428
  Serious: Yes (Other)
  Sender: FDA-Public Use
  Company Number: None

PATIENT
  Age: 48 Year
  Sex: Male
  Weight: 83.25 kg

DRUGS (4)
  1. LIPITOR [Concomitant]
     Active Substance: ATORVASTATIN CALCIUM
  2. ONE-A-DAY MEN^S MULTIVITAMINS [Concomitant]
  3. INDOMETHACIN. [Suspect]
     Active Substance: INDOMETHACIN
     Indication: PERICARDITIS
     Dosage: ?          QUANTITY:1 CAPSULE(S);?
     Route: 048
     Dates: start: 20170217, end: 20170218
  4. ADVIL [Concomitant]
     Active Substance: IBUPROFEN

REACTIONS (9)
  - Anxiety [None]
  - Panic attack [None]
  - Dyspnoea [None]
  - Nausea [None]
  - Cough [None]
  - Dizziness [None]
  - Pericarditis [None]
  - Chest pain [None]
  - Hypoaesthesia [None]

NARRATIVE: CASE EVENT DATE: 20170217
